FAERS Safety Report 9808203 (Version 1)
Quarter: 2014Q1

REPORT INFORMATION
  Report Type: Spontaneous
  Country: US (occurrence: None)
  Receive Date: 20140108
  Receipt Date: 20140108
  Transmission Date: 20141002
  Serious: Yes (Death)
  Sender: FDA-Public Use
  Company Number: SYM-2014-14596

PATIENT
  Age: 7 Year
  Sex: Male

DRUGS (2)
  1. XENAZINE [Suspect]
     Indication: CEREBRAL PALSY
     Dosage: 2 IN 1 D
     Route: 048
     Dates: start: 20120910, end: 20131231
  2. XENAZINE [Suspect]
     Indication: OFF LABEL USE
     Dosage: 2 IN 1 D
     Route: 048
     Dates: start: 20120910, end: 20131231

REACTIONS (1)
  - Death [None]
